FAERS Safety Report 5217029-6 (Version None)
Quarter: 2007Q1

REPORT INFORMATION
  Report Type: 
  Country: None (occurrence: None)
  Receive Date: 20070119
  Receipt Date: 20070108
  Transmission Date: 20070707
  Serious: Yes (Hospitalization)
  Sender: FDA-Public Use
  Company Number: GXKR2007NL00581

PATIENT
  Age: 54 Year
  Sex: Male

DRUGS (3)
  1. ISONIAZID [Suspect]
     Indication: PULMONARY TUBERCULOSIS
     Dosage: 300 MG, QD, ORAL
     Route: 048
  2. RIFAMPICIN [Suspect]
     Indication: PULMONARY TUBERCULOSIS
     Dosage: 600 MG, QD, ORAL
     Route: 048
  3. PYRAZINAMIDE [Suspect]
     Indication: PULMONARY TUBERCULOSIS
     Dosage: 2000 MG, QD, ORAL
     Route: 048

REACTIONS (13)
  - ACUTE HEPATIC FAILURE [None]
  - ANOREXIA [None]
  - COAGULOPATHY [None]
  - CYTOMEGALOVIRUS ANTIBODY POSITIVE [None]
  - DIZZINESS [None]
  - EPSTEIN-BARR VIRUS ANTIBODY POSITIVE [None]
  - FATIGUE [None]
  - HEPATIC ENCEPHALOPATHY [None]
  - HEPATITIS B [None]
  - LIVER TRANSPLANT [None]
  - OEDEMA [None]
  - PROTHROMBIN TIME PROLONGED [None]
  - SOMNOLENCE [None]
